FAERS Safety Report 23149521 (Version 2)
Quarter: 2023Q4

REPORT INFORMATION
  Report Type: Report from Study
  Country: US (occurrence: US)
  Receive Date: 20231106
  Receipt Date: 20231204
  Transmission Date: 20240110
  Serious: Yes (Other)
  Sender: FDA-Public Use
  Company Number: US-ABBVIE-5475602

PATIENT
  Sex: Male

DRUGS (1)
  1. HUMIRA [Suspect]
     Active Substance: ADALIMUMAB
     Indication: Psoriatic arthropathy
     Dosage: FORM STRENGTH: 40MILLIGRAM?CITRATE FREE
     Route: 058
     Dates: start: 20221013, end: 20231002

REACTIONS (4)
  - Intervertebral disc protrusion [Not Recovered/Not Resolved]
  - Road traffic accident [Unknown]
  - Inflammation [Not Recovered/Not Resolved]
  - Spinal fusion acquired [Not Recovered/Not Resolved]

NARRATIVE: CASE EVENT DATE: 20220101
